FAERS Safety Report 9172875 (Version 1)
Quarter: 2012Q4

REPORT INFORMATION
  Report Type: Report from Study
  Country: US (occurrence: US)
  Receive Date: 20120911
  Receipt Date: 20120911
  Transmission Date: 20130627
  Serious: Yes (Death)
  Sender: FDA-Public Use
  Company Number: US-ROCHE-1111017

PATIENT
  Sex: Female
  Weight: 73 kg

DRUGS (13)
  1. AVASTIN [Suspect]
     Indication: NON-SMALL CELL LUNG CANCER
     Dosage: Date of last dose prior to SAE: 09/Jun/2010
     Route: 042
     Dates: start: 20100318
  2. PEMETREXED [Suspect]
     Indication: NON-SMALL CELL LUNG CANCER
     Dosage: Date of last dose prior to SAE: 09/Jun/2010
     Route: 042
     Dates: start: 20100318
  3. CARBOPLATIN [Suspect]
     Indication: NON-SMALL CELL LUNG CANCER
     Dosage: Date of last dose prior to SAE: 09/Jun/2010
     Route: 042
     Dates: start: 20100318
  4. VITAMIN B12 [Concomitant]
     Route: 065
     Dates: start: 20100310
  5. FOLIC ACID [Concomitant]
     Route: 065
     Dates: start: 20100310
  6. LEXAPRO [Concomitant]
  7. ZOFRAN [Concomitant]
     Route: 065
     Dates: start: 20100318
  8. DECADRON [Concomitant]
     Route: 065
     Dates: start: 20100318
  9. PERCOCET [Concomitant]
     Route: 065
     Dates: start: 20100318
  10. WELLBUTRIN [Concomitant]
  11. DIOVAN [Concomitant]
     Route: 065
     Dates: start: 2006
  12. OXYCONTIN [Concomitant]
     Route: 065
     Dates: start: 20100310
  13. ATIVAN [Concomitant]
     Route: 065
     Dates: start: 20100609

REACTIONS (1)
  - Cardiac arrest [Fatal]
